FAERS Safety Report 6655893-4 (Version None)
Quarter: 2010Q1

REPORT INFORMATION
  Report Type: 
  Country: None (occurrence: None)
  Receive Date: 20100329
  Receipt Date: 20100317
  Transmission Date: 20100710
  Serious: Yes (Other)
  Sender: FDA-Public Use
  Company Number: PHHY2010JP16397

PATIENT
  Sex: Male

DRUGS (2)
  1. TEGRETOL [Suspect]
     Indication: NEURALGIA
     Dosage: 600 MG, UNK
  2. VOLTAREN [Suspect]
     Indication: NEURALGIA
     Dosage: 75 MG, UNK

REACTIONS (4)
  - DRUG ERUPTION [None]
  - HYPOPHAGIA [None]
  - NERVE BLOCK [None]
  - PAIN [None]
